FAERS Safety Report 5720453-6 (Version None)
Quarter: 2008Q2

REPORT INFORMATION
  Report Type: 
  Country: None (occurrence: None)
  Receive Date: 20080423
  Receipt Date: 20070522
  Transmission Date: 20081010
  Serious: No
  Sender: FDA-Public Use
  Company Number: 240143

PATIENT
  Age: 47 Year
  Sex: Female
  Weight: 56.7 kg

DRUGS (4)
  1. AVASTIN [Suspect]
     Indication: RECTAL CANCER
     Dosage: 632, Q2W, INTRAVENOUS
     Route: 042
     Dates: start: 20070221, end: 20070308
  2. FLUOROURACIL [Concomitant]
  3. LEUCOVORIN CALCIUM [Concomitant]
  4. OXALIPLATIN [Concomitant]

REACTIONS (1)
  - FEMALE GENITAL TRACT FISTULA [None]
